FAERS Safety Report 18367322 (Version 1)
Quarter: 2020Q4

REPORT INFORMATION
  Report Type: Spontaneous
  Country: DK (occurrence: DK)
  Receive Date: 20201009
  Receipt Date: 20201009
  Transmission Date: 20210114
  Serious: Yes (Life-Threatening, Hospitalization, Other)
  Sender: FDA-Public Use
  Company Number: DK-BRISTOL-MYERS SQUIBB COMPANY-BMS-2020-082782

PATIENT
  Age: 65 Year
  Sex: Male

DRUGS (12)
  1. EVOTAZ [Suspect]
     Active Substance: ATAZANAVIR SULFATE\COBICISTAT
     Indication: HIV INFECTION
     Dosage: STRENGTH: 300 MG/150 MG
     Route: 048
     Dates: start: 20170913, end: 20200721
  2. IBUPROFEN. [Concomitant]
     Active Substance: IBUPROFEN
     Indication: PAIN
     Dosage: STRENGTH: 400 MG
     Route: 048
     Dates: start: 20200203, end: 20200728
  3. LOSARTAN. [Concomitant]
     Active Substance: LOSARTAN
     Indication: HYPERTENSION
     Dosage: STRENGTH: 50 MG
     Route: 048
     Dates: start: 20191127, end: 20200901
  4. VIREAD [Suspect]
     Active Substance: TENOFOVIR DISOPROXIL FUMARATE
     Indication: HIV INFECTION
     Dosage: 245 MILLIGRAM, QD
     Route: 048
     Dates: start: 2015, end: 202007
  5. REYATAZ [Suspect]
     Active Substance: ATAZANAVIR SULFATE
     Indication: HIV INFECTION
     Dosage: UNK
     Route: 048
     Dates: end: 20170913
  6. INDACATEROL OG GLYCOPYRRONIUM [Concomitant]
     Indication: CHRONIC OBSTRUCTIVE PULMONARY DISEASE
     Dosage: STRENGTH: 85+43 MICROGRAM
     Route: 055
     Dates: start: 20180824
  7. MELATONIN [Concomitant]
     Active Substance: MELATONIN
     Indication: INSOMNIA
     Dosage: STRENGTH: 3 MG
     Route: 048
     Dates: start: 20200428
  8. DAIVOBET [Concomitant]
     Active Substance: BETAMETHASONE DIPROPIONATE\CALCIPOTRIENE
     Indication: PSORIASIS
     Dosage: STRENGTH: 50+500 MICROGRAM/ GRAM
     Route: 003
     Dates: start: 20120131
  9. RISPERDAL CONSTA [Concomitant]
     Active Substance: RISPERIDONE
     Indication: SCHIZOPHRENIA
     Dosage: STRENGTH: 25 MG
     Route: 030
     Dates: start: 20131112
  10. PARACETAMOL [Concomitant]
     Active Substance: ACETAMINOPHEN
     Indication: PAIN
     Dosage: STRENGTH: 500 MG DOSAGE: MAX 4 TIMES DAILY
     Route: 048
     Dates: start: 20180413
  11. LAMIVUDINE. [Concomitant]
     Active Substance: LAMIVUDINE
     Indication: HIV INFECTION
     Dosage: STRENGTH: 100 MG
     Route: 048
  12. SALBUTAMOL [Concomitant]
     Active Substance: ALBUTEROL
     Indication: DYSPNOEA
     Dosage: STRENGTH: 200 MICROGRAM/ DOSIS
     Route: 055
     Dates: start: 20180824

REACTIONS (3)
  - Fatigue [Recovering/Resolving]
  - Cardiac arrest [Recovered/Resolved]
  - Renal failure [Recovering/Resolving]

NARRATIVE: CASE EVENT DATE: 202007
